FAERS Safety Report 7169085-6 (Version None)
Quarter: 2010Q4

REPORT INFORMATION
  Report Type: 
  Country: None (occurrence: None)
  Receive Date: 20101216
  Receipt Date: 20100115
  Transmission Date: 20110411
  Serious: No
  Sender: FDA-Public Use
  Company Number: US-AMGEN-KDL386032

PATIENT

DRUGS (7)
  1. ENBREL [Suspect]
     Indication: PRODUCT USED FOR UNKNOWN INDICATION
     Dosage: 50 MG, QWK
     Route: 058
  2. DEXTROPROPOXYPHENE NAPSILATE W/ ACETAMINOPHEN [Concomitant]
     Dosage: 100 MG, UNK
     Route: 048
  3. DULOXETINE HYDROCHLORIDE [Concomitant]
     Dosage: UNK UNK, UNK
     Route: 048
  4. TRAZODONE [Concomitant]
     Dosage: 50 MG, UNK
     Route: 048
  5. NARATRIPTAN [Concomitant]
     Dosage: 1 MG, UNK
  6. NEBIVOLOL HCL [Concomitant]
     Dosage: 5 MG, UNK
     Route: 048
  7. IRON [Concomitant]
     Dosage: 18 MG, UNK
     Route: 048

REACTIONS (3)
  - H1N1 INFLUENZA [None]
  - INJECTION SITE ERYTHEMA [None]
  - URTICARIA [None]
